FAERS Safety Report 5167186-5 (Version None)
Quarter: 2006Q4

REPORT INFORMATION
  Report Type: 
  Country: None (occurrence: None)
  Receive Date: 20061130
  Receipt Date: 20061127
  Transmission Date: 20070319
  Serious: Yes (Life-Threatening, Hospitalization)
  Sender: FDA-Public Use
  Company Number: TCI2006A04046

PATIENT
  Age: 38 Year
  Sex: Female

DRUGS (2)
  1. LEUPROLIDE ACETATE [Suspect]
     Indication: MENORRHAGIA
     Dosage: 1.88 MG (1.88 MG,1 IN 28 D)
     Route: 058
     Dates: start: 20060904
  2. DUOLUTON (ETHINYL ESTRADIOL W/NORGESTREL) (TABLETS) [Suspect]
     Indication: GENITAL HAEMORRHAGE
     Dosage: 2 TAB (2 TAB., 1 IN 1 D)
     Route: 048
     Dates: start: 20060725, end: 20060904

REACTIONS (5)
  - ANAEMIA [None]
  - DISSEMINATED INTRAVASCULAR COAGULATION [None]
  - GENITAL HAEMORRHAGE [None]
  - METRORRHAGIA [None]
  - SYSTEMIC INFLAMMATORY RESPONSE SYNDROME [None]
